FAERS Safety Report 20233294 (Version 1)
Quarter: 2021Q4

REPORT INFORMATION
  Report Type: Spontaneous
  Country: JP (occurrence: JP)
  Receive Date: 20211227
  Receipt Date: 20211227
  Transmission Date: 20220303
  Serious: Yes (Death)
  Sender: FDA-Public Use
  Company Number: JP-MALLINCKRODT-T202105650

PATIENT

DRUGS (1)
  1. NITRIC OXIDE [Suspect]
     Active Substance: NITRIC OXIDE
     Indication: Pulmonary hypertension
     Dosage: UNK, (INHALATION)
     Route: 055
     Dates: start: 20211115

REACTIONS (2)
  - Pulmonary hypoplasia [Fatal]
  - Product use issue [Unknown]

NARRATIVE: CASE EVENT DATE: 20210101
